FAERS Safety Report 7799515-8 (Version None)
Quarter: 2011Q4

REPORT INFORMATION
  Report Type: 
  Country: None (occurrence: None)
  Receive Date: 20111004
  Receipt Date: 20110920
  Transmission Date: 20120403
  Serious: Yes (Hospitalization, Other)
  Sender: FDA-Public Use
  Company Number: NGX_00596_2011

PATIENT
  Age: 44 Year
  Sex: Male

DRUGS (1)
  1. QUTENZA [Suspect]
     Indication: PRODUCT USED FOR UNKNOWN INDICATION
     Dosage: (DF [PATCH, APPLIED TO FEET] TOPICAL)
     Route: 061
     Dates: start: 20110901

REACTIONS (4)
  - BURNING SENSATION [None]
  - DRUG INEFFECTIVE [None]
  - DYSSTASIA [None]
  - APPLICATION SITE PAIN [None]
